FAERS Safety Report 6630917-9 (Version None)
Quarter: 2010Q1

REPORT INFORMATION
  Report Type: 
  Country: None (occurrence: None)
  Receive Date: 20100311
  Receipt Date: 20100301
  Transmission Date: 20100710
  Serious: Yes (Hospitalization, Other)
  Sender: FDA-Public Use
  Company Number: DE-ELI_LILLY_AND_COMPANY-DE201003000817

PATIENT
  Age: 33 Year
  Sex: Female

DRUGS (3)
  1. ZYPREXA [Suspect]
     Indication: SCHIZOPHRENIA, PARANOID TYPE
     Dosage: 20 MG, DAILY (1/D)
     Route: 048
     Dates: start: 20090129
  2. FLUOXETINE [Concomitant]
     Dosage: 20 MG, DAILY (1/D)
     Route: 048
     Dates: start: 20090101
  3. PANTOZOL [Concomitant]
     Dosage: 40 MG, DAILY (1/D)
     Route: 048
     Dates: start: 20090401

REACTIONS (7)
  - ABNORMAL BEHAVIOUR [None]
  - AGITATION [None]
  - HALLUCINATION, AUDITORY [None]
  - OBSESSIVE-COMPULSIVE DISORDER [None]
  - SELF-INJURIOUS IDEATION [None]
  - SLEEP DISORDER [None]
  - WEIGHT INCREASED [None]
